FAERS Safety Report 25167869 (Version 2)
Quarter: 2025Q3

REPORT INFORMATION
  Report Type: Spontaneous
  Country: US (occurrence: US)
  Receive Date: 20250407
  Receipt Date: 20250812
  Transmission Date: 20251021
  Serious: Yes (Other)
  Sender: BAYER HEALTHCARE PHARMACEUTICALS INC.
  Company Number: US-BAYER-2025A044324

PATIENT
  Age: 36 Year
  Sex: Female

DRUGS (3)
  1. MIRENA [Suspect]
     Active Substance: LEVONORGESTREL
     Indication: Contraception
     Dosage: 20?G/DAY
     Route: 015
     Dates: start: 202009, end: 20250317
  2. WEGOVY [Concomitant]
     Active Substance: SEMAGLUTIDE
     Indication: Obesity
     Dates: start: 20250301
  3. Fentermin [Concomitant]
     Indication: Obesity
     Dates: start: 20250301

REACTIONS (2)
  - Device breakage [Recovered/Resolved]
  - Complication of device removal [None]

NARRATIVE: CASE EVENT DATE: 20250317
